FAERS Safety Report 12549413 (Version 1)
Quarter: 2016Q3

REPORT INFORMATION
  Report Type: Report from Study
  Country: JP (occurrence: JP)
  Receive Date: 20160712
  Receipt Date: 20160712
  Transmission Date: 20161109
  Serious: Yes (Hospitalization)
  Sender: FDA-Public Use
  Company Number: JP-SA-2016SA124274

PATIENT
  Age: 71 Year
  Sex: Male
  Weight: 59.5 kg

DRUGS (6)
  1. MICARDIS [Concomitant]
     Active Substance: TELMISARTAN
     Dates: start: 20150131
  2. PLAVIX [Suspect]
     Active Substance: CLOPIDOGREL BISULFATE
     Indication: CEREBROVASCULAR ACCIDENT
     Route: 065
     Dates: end: 20141224
  3. LOXOPROFEN [Concomitant]
     Active Substance: LOXOPROFEN
  4. PLAVIX [Suspect]
     Active Substance: CLOPIDOGREL BISULFATE
     Indication: CEREBROVASCULAR ACCIDENT
     Route: 065
     Dates: start: 20141225, end: 20160129
  5. REBAMIPIDE [Concomitant]
     Active Substance: REBAMIPIDE
  6. LIPIDIL [Concomitant]
     Active Substance: FENOFIBRATE
     Dates: start: 20150418

REACTIONS (4)
  - Epistaxis [Recovered/Resolved]
  - Epistaxis [Recovered/Resolved]
  - Epilepsy [Recovered/Resolved]
  - Epilepsy [Recovering/Resolving]

NARRATIVE: CASE EVENT DATE: 20150416
